FAERS Safety Report 9751496 (Version 1)
Quarter: 2013Q4

REPORT INFORMATION
  Report Type: Spontaneous
  Country: US (occurrence: US)
  Receive Date: 20131212
  Receipt Date: 20131212
  Transmission Date: 20140711
  Serious: No
  Sender: FDA-Public Use
  Company Number: US-PURDUE-USA-2013-0108250

PATIENT
  Age: 51 Year
  Sex: Female

DRUGS (3)
  1. DILAUDID TABLET [Suspect]
     Indication: PAIN
     Dosage: UNK
     Route: 048
  2. NEURONTIN [Concomitant]
     Indication: NEURALGIA
     Dosage: 4800 MG, DAILY
  3. FENTANYL [Concomitant]
     Indication: PAIN

REACTIONS (1)
  - Drug ineffective [Unknown]
